FAERS Safety Report 5517117-0 (Version None)
Quarter: 2007Q4

REPORT INFORMATION
  Report Type: 
  Country: None (occurrence: None)
  Receive Date: 20071114
  Receipt Date: 20071108
  Transmission Date: 20080405
  Serious: Yes (Other)
  Sender: FDA-Public Use
  Company Number: A0694334A

PATIENT
  Age: 45 Year
  Sex: Female
  Weight: 115 kg

DRUGS (5)
  1. SERETIDE [Suspect]
     Indication: ASTHMA
     Route: 055
     Dates: start: 20061224
  2. COMBIVENT [Concomitant]
     Dates: start: 20061224
  3. NAPRIX [Concomitant]
     Dates: start: 20061224
  4. FLUOXETINE [Concomitant]
     Dates: start: 20020101
  5. LEXOTAN [Concomitant]

REACTIONS (1)
  - ANAEMIA [None]
